FAERS Safety Report 6301089-5 (Version None)
Quarter: 2009Q3

REPORT INFORMATION
  Report Type: 
  Country: None (occurrence: None)
  Receive Date: 20090807
  Receipt Date: 20090730
  Transmission Date: 20100115
  Serious: Yes (Other)
  Sender: FDA-Public Use
  Company Number: PHHY2009ES32024

PATIENT
  Age: 86 Year
  Sex: Female

DRUGS (4)
  1. RIVASTIGMINE TARTRATE [Suspect]
     Indication: DEMENTIA ALZHEIMER'S TYPE
     Dosage: 4.6 MG, QD
     Route: 062
     Dates: start: 20090408, end: 20090518
  2. ADIRO [Concomitant]
  3. COMTAN [Concomitant]
  4. SINEMET [Concomitant]

REACTIONS (1)
  - LOSS OF CONSCIOUSNESS [None]
